FAERS Safety Report 7773015-3 (Version None)
Quarter: 2011Q3

REPORT INFORMATION
  Report Type: 
  Country: None (occurrence: None)
  Receive Date: 20110922
  Receipt Date: 20101208
  Transmission Date: 20111222
  Serious: No
  Sender: FDA-Public Use
  Company Number: US-ASTRAZENECA-2010SE58161

PATIENT
  Sex: Female

DRUGS (3)
  1. CLONAZEPAM [Suspect]
     Indication: ANXIETY
     Route: 065
  2. FLUOXETINE [Suspect]
     Route: 065
  3. SEROQUEL XR [Suspect]
     Indication: BIPOLAR DISORDER
     Route: 048

REACTIONS (7)
  - FIBROMYALGIA [None]
  - BIPOLAR I DISORDER [None]
  - RESTLESS LEGS SYNDROME [None]
  - DISABILITY [None]
  - DRUG DOSE OMISSION [None]
  - INTERVERTEBRAL DISC DEGENERATION [None]
  - NERVE COMPRESSION [None]
